FAERS Safety Report 19626693 (Version 2)
Quarter: 2022Q1

REPORT INFORMATION
  Report Type: Spontaneous
  Country: BR (occurrence: BR)
  Receive Date: 20210729
  Receipt Date: 20220125
  Transmission Date: 20220423
  Serious: Yes (Disabling, Other)
  Sender: FDA-Public Use
  Company Number: BR-GSKCCFAMERS-CASE-01116899_AE-65777

PATIENT
  Sex: Female

DRUGS (4)
  1. ALBUTEROL [Suspect]
     Active Substance: ALBUTEROL
     Indication: Cough
     Dosage: 100 UG, 100 MCG/DOSE
     Route: 055
     Dates: start: 2011
  2. ALBUTEROL [Suspect]
     Active Substance: ALBUTEROL
     Indication: Fatigue
  3. ALBUTEROL [Suspect]
     Active Substance: ALBUTEROL
     Indication: Wheezing
  4. BECLOMETHASONE DIPROPIONATE [Concomitant]
     Active Substance: BECLOMETHASONE DIPROPIONATE
     Indication: Product used for unknown indication
     Dosage: UNK

REACTIONS (19)
  - Osteoarthritis [Not Recovered/Not Resolved]
  - Endometrial cancer [Unknown]
  - Cataract [Unknown]
  - Blindness [Unknown]
  - Memory impairment [Not Recovered/Not Resolved]
  - Bronchitis [Recovered/Resolved]
  - Glucose tolerance impaired [Unknown]
  - Anxiety [Unknown]
  - Condition aggravated [Unknown]
  - Multiple allergies [Unknown]
  - Urinary tract infection [Recovered/Resolved]
  - Gastrointestinal disorder [Unknown]
  - Cholelithiasis [Unknown]
  - Hernia [Unknown]
  - Weight decreased [Unknown]
  - Mass [Unknown]
  - Wrong technique in device usage process [Unknown]
  - Drug ineffective for unapproved indication [Unknown]
  - Product use in unapproved indication [Unknown]
